FAERS Safety Report 6331566-2 (Version None)
Quarter: 2009Q3

REPORT INFORMATION
  Report Type: 
  Country: None (occurrence: None)
  Receive Date: 20090827
  Receipt Date: 20090820
  Transmission Date: 20100115
  Serious: Yes (Other)
  Sender: FDA-Public Use
  Company Number: US-BAYER-200930593NA

PATIENT
  Age: 56 Year
  Sex: Female
  Weight: 50 kg

DRUGS (1)
  1. ULTRAVIST 300 [Suspect]
     Indication: HAEMATURIA
     Dosage: RIGHT ANTECUBITAL; POWER INJECTOR
     Route: 042
     Dates: start: 20090820, end: 20090820

REACTIONS (3)
  - CHEST DISCOMFORT [None]
  - NASAL CONGESTION [None]
  - URTICARIA [None]
